FAERS Safety Report 14983599 (Version 1)
Quarter: 2018Q2

REPORT INFORMATION
  Report Type: Spontaneous
  Country: DE (occurrence: DE)
  Receive Date: 20180607
  Receipt Date: 20180607
  Transmission Date: 20180711
  Serious: Yes (Life-Threatening, Hospitalization)
  Sender: FDA-Public Use
  Company Number: DE-TEVA-2018-DE-901018

PATIENT
  Age: 65 Year
  Sex: Male

DRUGS (11)
  1. METRONIDAZOLE. [Suspect]
     Active Substance: METRONIDAZOLE
     Route: 065
  2. FLUDARABINE [Concomitant]
     Active Substance: FLUDARABINE PHOSPHATE
     Dosage: FLAMSA-BU REGIMEN
     Route: 065
  3. CYTOSINE-ARABINOSIDE [Concomitant]
     Active Substance: CYTARABINE
     Dosage: FLAMSA-BU REGIMEN
     Route: 065
  4. ONDANSETRON [Suspect]
     Active Substance: ONDANSETRON
     Route: 065
  5. LEVOFLOXACIN. [Suspect]
     Active Substance: LEVOFLOXACIN
     Route: 065
  6. AMSACRINE [Suspect]
     Active Substance: AMSACRINE
     Dosage: FLAMSA-BU REGIMEN
     Route: 050
  7. FUROSEMIDE. [Suspect]
     Active Substance: FUROSEMIDE
     Route: 065
  8. CLEMASTINE [Suspect]
     Active Substance: CLEMASTINE
     Route: 065
  9. BUSULFAN. [Concomitant]
     Active Substance: BUSULFAN
     Dosage: FLAMSA-BU REGIMEN
     Route: 065
  10. LIPOSOMAL AMPHOTERICIN B [Suspect]
     Active Substance: AMPHOTERICIN B
     Route: 065
  11. CYCLOPHOSPHAMIDE. [Concomitant]
     Active Substance: CYCLOPHOSPHAMIDE
     Dosage: FLAMSA-BU REGIMEN
     Route: 065

REACTIONS (4)
  - Cardiac arrest [Recovered/Resolved]
  - Torsade de pointes [Recovered/Resolved]
  - Ventricular fibrillation [Recovered/Resolved]
  - Long QT syndrome [Recovered/Resolved]
